FAERS Safety Report 8190996-7 (Version None)
Quarter: 2012Q1

REPORT INFORMATION
  Report Type: 
  Country: None (occurrence: None)
  Receive Date: 20120307
  Receipt Date: 20120228
  Transmission Date: 20120608
  Serious: Yes (Other)
  Sender: FDA-Public Use
  Company Number: US-ABBOTT-12P-163-0909611-00

PATIENT
  Sex: Male
  Weight: 59.928 kg

DRUGS (10)
  1. MARINOL [Suspect]
     Indication: APPETITE DISORDER
  2. PREZISTA [Suspect]
     Indication: HIV INFECTION
  3. TRUVADA [Suspect]
     Indication: DIABETES MELLITUS
  4. MARINOL [Suspect]
     Indication: PAIN
  5. NORVIR [Suspect]
     Indication: HIV INFECTION
  6. LISINOPRIL [Suspect]
     Indication: HYPERTENSION
  7. MARINOL [Suspect]
     Indication: HIV INFECTION
     Dosage: TWICE DAILY - BEFORE LUNCH + DINNER
     Dates: start: 20110801
  8. TRUVADA [Suspect]
     Indication: HIV INFECTION
  9. AMBIEN [Suspect]
     Indication: INSOMNIA
  10. LYRICA [Suspect]
     Indication: NEURALGIA

REACTIONS (4)
  - OFF LABEL USE [None]
  - SUICIDAL IDEATION [None]
  - SLEEP DISORDER [None]
  - TREMOR [None]
